FAERS Safety Report 8466158-2 (Version None)
Quarter: 2012Q2

REPORT INFORMATION
  Report Type: 
  Country: None (occurrence: None)
  Receive Date: 20120626
  Receipt Date: 20120620
  Transmission Date: 20120825
  Serious: Yes (Hospitalization, Other)
  Sender: FDA-Public Use
  Company Number: US-PFIZER INC-2012086412

PATIENT
  Sex: Female
  Weight: 77.551 kg

DRUGS (6)
  1. METFORMIN HYDROCHLORIDE [Concomitant]
     Indication: DIABETES MELLITUS
     Dosage: 500 MG, 2X/DAY
  2. DILANTIN [Suspect]
     Indication: CONVULSION
     Dosage: 100MG IN THE MORNING AND 200MG AT NIGHT, 2X/DAY
     Dates: start: 19760101
  3. HYDROCORTISONE [Concomitant]
     Indication: FUNGAL INFECTION
     Dosage: UNK
  4. DILANTIN [Suspect]
     Indication: EPILEPSY
     Dosage: 100 MG, 1 CAPSULE, 3 TIMES A DAY
     Route: 048
     Dates: start: 19750101
  5. TRIAMTERENE AND HYDROCHLOROTHIAZIDE [Concomitant]
     Indication: HYPERTENSION
     Dosage: 25/37.5 MG, DAILY
     Dates: start: 20080101
  6. SYNTHROID [Concomitant]
     Indication: THYROID DISORDER
     Dosage: 125 UG, DAILY

REACTIONS (11)
  - DYSPHAGIA [None]
  - LUNG DISORDER [None]
  - DIARRHOEA [None]
  - ABDOMINAL PAIN [None]
  - PNEUMONITIS [None]
  - PERSONALITY DISORDER [None]
  - GASTRIC ULCER [None]
  - ANXIETY [None]
  - NAUSEA [None]
  - STRESS [None]
  - DIABETES MELLITUS [None]
